FAERS Safety Report 23792446 (Version 4)
Quarter: 2024Q2

REPORT INFORMATION
  Report Type: Spontaneous
  Country: US (occurrence: US)
  Receive Date: 20240429
  Receipt Date: 20240610
  Transmission Date: 20240717
  Serious: No
  Sender: FDA-Public Use
  Company Number: US-PFIZER INC-202400088089

PATIENT
  Age: 10 Year
  Sex: Female
  Weight: 24.943 kg

DRUGS (1)
  1. GENOTROPIN [Suspect]
     Active Substance: SOMATROPIN
     Indication: Short stature
     Dosage: 1.4 MG, 6 DAYS/WEEK
     Dates: start: 202303

REACTIONS (6)
  - Drug dose omission by device [Unknown]
  - Product dose omission issue [Unknown]
  - Device issue [Unknown]
  - Device breakage [Unknown]
  - Device use error [Unknown]
  - Poor quality device used [Unknown]

NARRATIVE: CASE EVENT DATE: 20240301
